FAERS Safety Report 4640690-1 (Version None)
Quarter: 2005Q2

REPORT INFORMATION
  Report Type: 
  Country: None (occurrence: None)
  Receive Date: 20050419
  Receipt Date: 20050406
  Transmission Date: 20051028
  Serious: Yes (Hospitalization, Disabling)
  Sender: FDA-Public Use
  Company Number: 2005032372

PATIENT
  Age: 35 Year
  Sex: Male

DRUGS (16)
  1. SOLU-MEDROL [Suspect]
     Indication: STATUS ASTHMATICUS
     Dosage: SEE IMAGE
     Route: 042
     Dates: start: 20050103, end: 20050105
  2. SOLU-MEDROL [Suspect]
     Indication: STATUS ASTHMATICUS
     Dosage: SEE IMAGE
     Route: 042
     Dates: start: 20050107, end: 20050109
  3. SOLU-MEDROL [Suspect]
     Indication: STATUS ASTHMATICUS
     Dosage: SEE IMAGE
     Route: 042
     Dates: start: 20050110, end: 20050113
  4. SOLU-CORTEF [Suspect]
     Indication: ILL-DEFINED DISORDER
  5. PREDNISONE [Suspect]
     Indication: STATUS ASTHMATICUS
     Dosage: 60 MG (60 MG), INTRAVENOUS
     Route: 042
     Dates: start: 20050114
  6. MUSCLE RELAXANTS (MUSCLE RELAXANTS) [Suspect]
  7. MONTELUKAST SODIUM (MONTELUKAST SODIM) [Concomitant]
  8. SODIUM ALGINATE (SODIUM ALGINATE) [Concomitant]
  9. SODIUM GUALENATE (SODIUM GUALENATE0 [Concomitant]
  10. AMINOPHYLLIN [Concomitant]
  11. PROPOFOL [Concomitant]
  12. HALOPERIDOL [Concomitant]
  13. CEFPIROME SULFATE (CEFPIROME SULFATE) [Concomitant]
  14. HYDROCORTISONE SODIUM SUCCINATE [Concomitant]
  15. THEOPHYLLINE (THOPHILLINE) [Concomitant]
  16. PANCURONIUM BROMIDE [Concomitant]

REACTIONS (6)
  - ABASIA [None]
  - DYSSTASIA [None]
  - MUSCULAR WEAKNESS [None]
  - PERONEAL MUSCULAR ATROPHY [None]
  - PERONEAL NERVE PALSY [None]
  - THERAPY NON-RESPONDER [None]
